FAERS Safety Report 9827463 (Version 1)
Quarter: 2014Q1

REPORT INFORMATION
  Report Type: Spontaneous
  Country: US (occurrence: None)
  Receive Date: 20140116
  Receipt Date: 20140116
  Transmission Date: 20141002
  Serious: Yes (Other)
  Sender: FDA-Public Use
  Company Number: None

PATIENT
  Age: 51 Year
  Sex: Male
  Weight: 71.36 kg

DRUGS (11)
  1. FENTANYL [Suspect]
     Indication: BACK PAIN
     Dosage: 100 MCG/HR?5/BOX?APPLY EVERY 3 DAYS?ON THE SKIN
     Dates: start: 20130506
  2. METFORMIN HCL [Concomitant]
  3. MORPHINE SULFATE [Concomitant]
  4. ASPIRIN [Concomitant]
  5. CYCLOBENZAPRINE [Concomitant]
  6. DETEMIR INSULIN [Concomitant]
  7. ERGOCOLIFEROL [Concomitant]
  8. LISINOPRIL [Concomitant]
  9. PROCASAIN [Concomitant]
  10. FENTANYL [Concomitant]
  11. FERRUS SULFATE [Concomitant]

REACTIONS (3)
  - Rash [None]
  - Wound [None]
  - Excoriation [None]
